FAERS Safety Report 7152966-7 (Version None)
Quarter: 2010Q4

REPORT INFORMATION
  Report Type: 
  Country: None (occurrence: None)
  Receive Date: 20101213
  Receipt Date: 20101202
  Transmission Date: 20110411
  Serious: Yes (Other)
  Sender: FDA-Public Use
  Company Number: FI-JNJFOC-20101203470

PATIENT

DRUGS (2)
  1. REMICADE [Suspect]
     Indication: PRODUCT USED FOR UNKNOWN INDICATION
     Route: 042
  2. PRIMPERAN TAB [Interacting]
     Indication: ILL-DEFINED DISORDER

REACTIONS (2)
  - APHASIA [None]
  - DRUG INTERACTION [None]
